FAERS Safety Report 6821698-4 (Version None)
Quarter: 2010Q3

REPORT INFORMATION
  Report Type: 
  Country: None (occurrence: None)
  Receive Date: 20100702
  Receipt Date: 20100628
  Transmission Date: 20110219
  Serious: Yes (Life-Threatening, Hospitalization)
  Sender: FDA-Public Use
  Company Number: 606512

PATIENT
  Age: 65 Year
  Sex: Female
  Weight: 70 kg

DRUGS (8)
  1. PACLITAXEL [Suspect]
     Indication: OVARIAN CANCER
     Dosage: 312 MG MILLIGRAM(S), INTRAVENOUS;312 MG MILLIGRAM(S)
     Route: 042
     Dates: start: 20100512, end: 20100512
  2. PACLITAXEL [Suspect]
     Indication: OVARIAN CANCER
     Dosage: 312 MG MILLIGRAM(S), INTRAVENOUS;312 MG MILLIGRAM(S)
     Route: 042
     Dates: start: 20100604, end: 20100604
  3. PACLITAXEL [Suspect]
     Indication: OVARIAN CANCER
     Dosage: 312 MG MILLIGRAM(S), INTRAVENOUS; 312 MG MILLIGRAM(S)
     Route: 042
     Dates: start: 20100512, end: 20100512
  4. PACLITAXEL [Suspect]
     Indication: OVARIAN CANCER
     Dosage: 312 MG MILLIGRAM(S), INTRAVENOUS; 312 MG MILLIGRAM(S)
     Route: 042
     Dates: start: 20100604, end: 20100604
  5. CARBOPLATIN [Suspect]
     Indication: OVARIAN CANCER
     Dosage: 590 MG MILLIGRAM(S), INTRAVENOUS; 590 MG MILLIGRAM(S)
     Route: 042
     Dates: start: 20100512, end: 20100512
  6. CARBOPLATIN [Suspect]
     Indication: OVARIAN CANCER
     Dosage: 590 MG MILLIGRAM(S), INTRAVENOUS; 590 MG MILLIGRAM(S)
     Route: 042
     Dates: start: 20100604, end: 20100604
  7. GRANISETRON HCL [Concomitant]
  8. DEXAMETHASONE ACETATE [Concomitant]

REACTIONS (7)
  - BRADYCARDIA [None]
  - CONFUSIONAL STATE [None]
  - HYPERSENSITIVITY [None]
  - HYPOTENSION [None]
  - HYPOXIA [None]
  - NAUSEA [None]
  - RESPIRATORY ARREST [None]
